FAERS Safety Report 11268090 (Version 1)
Quarter: 2015Q3

REPORT INFORMATION
  Report Type: Spontaneous
  Country: FR (occurrence: FR)
  Receive Date: 20150714
  Receipt Date: 20150714
  Transmission Date: 20151125
  Serious: Yes (Other)
  Sender: FDA-Public Use
  Company Number: FR-TAKEDA-2015TUS008974

PATIENT

DRUGS (1)
  1. COLCHICINE. [Suspect]
     Active Substance: COLCHICINE
     Indication: PERICARDIAL EFFUSION
     Dosage: 1 MG, QD
     Route: 065

REACTIONS (2)
  - Gastrointestinal haemorrhage [Unknown]
  - Product use issue [Recovered/Resolved]
